FAERS Safety Report 7631286-8 (Version None)
Quarter: 2011Q3

REPORT INFORMATION
  Report Type: 
  Country: None (occurrence: None)
  Receive Date: 20110725
  Receipt Date: 20110714
  Transmission Date: 20111222
  Serious: Yes (Other)
  Sender: FDA-Public Use
  Company Number: GR-AMGEN-GRCSP2011032280

PATIENT
  Age: 81 Year
  Sex: Female
  Weight: 65 kg

DRUGS (8)
  1. GLIMEPIRIDE [Concomitant]
     Dosage: 2 MG, UNK
     Route: 048
     Dates: start: 20100101
  2. FELODIPINE [Concomitant]
  3. FISIOTENS [Concomitant]
     Dosage: 0.3 MG, UNK
     Route: 048
     Dates: start: 20090101
  4. PROLIA [Suspect]
     Indication: OSTEOPOROSIS
     Dosage: UNK UNK, Q6MO
     Route: 058
     Dates: start: 20110519
  5. METFORMIN [Concomitant]
     Dosage: 850 MG, UNK
     Route: 048
     Dates: start: 19980101
  6. AMLODIPINE/VALSARTAN/HYDROCHLOROTHIAZIDE [Suspect]
     Dosage: UNK
     Route: 048
     Dates: start: 20110101
  7. LONARID                            /00154101/ [Concomitant]
  8. CALCIORAL                          /00108001/ [Concomitant]
     Route: 048

REACTIONS (2)
  - BLOOD CREATININE INCREASED [None]
  - BLOOD UREA INCREASED [None]
